FAERS Safety Report 5376742-0 (Version None)
Quarter: 2007Q3

REPORT INFORMATION
  Report Type: 
  Country: None (occurrence: None)
  Receive Date: 20070703
  Receipt Date: 20070626
  Transmission Date: 20080115
  Serious: Yes (Hospitalization, Other)
  Sender: FDA-Public Use
  Company Number: PHEH2007US08161

PATIENT
  Sex: Female

DRUGS (1)
  1. ZELNORM [Suspect]
     Route: 048
     Dates: start: 20030101

REACTIONS (7)
  - ARRHYTHMIA [None]
  - CARDIAC ABLATION [None]
  - CHOLECYSTECTOMY [None]
  - DIZZINESS [None]
  - GASTRIC DISORDER [None]
  - HEART RATE INCREASED [None]
  - VISUAL DISTURBANCE [None]
